FAERS Safety Report 8217850-6 (Version None)
Quarter: 2012Q1

REPORT INFORMATION
  Report Type: 
  Country: None (occurrence: None)
  Receive Date: 20120319
  Receipt Date: 20120308
  Transmission Date: 20120608
  Serious: Yes (Hospitalization)
  Sender: FDA-Public Use
  Company Number: JP-AMGEN-JPNCT2011005310

PATIENT
  Age: 74 Year
  Sex: Female
  Weight: 38 kg

DRUGS (15)
  1. PANITUMUMAB [Suspect]
     Indication: COLORECTAL CANCER
     Dosage: 6 MG/KG, Q2WK
     Route: 041
     Dates: start: 20101027, end: 20110105
  2. IRINOTECAN HCL [Suspect]
     Indication: COLORECTAL CANCER
     Route: 041
     Dates: start: 20101027, end: 20110107
  3. LAC-B [Concomitant]
     Route: 048
     Dates: start: 20101026, end: 20110501
  4. FUNGIZONE [Concomitant]
     Route: 049
     Dates: start: 20101102, end: 20110501
  5. RHYTHMY [Concomitant]
     Route: 048
     Dates: start: 20101107, end: 20110501
  6. LEVOLEUCOVORIN CALCIUM [Suspect]
     Indication: COLORECTAL CANCER
     Route: 041
     Dates: start: 20101027, end: 20110107
  7. DECADRON [Concomitant]
     Dosage: 4 MG, BID
     Route: 048
     Dates: start: 20101029, end: 20101201
  8. LOXONIN [Concomitant]
     Route: 048
     Dates: start: 20101018, end: 20110501
  9. FLUOROURACIL [Suspect]
     Indication: COLORECTAL CANCER
     Route: 040
     Dates: start: 20101027, end: 20110107
  10. LAXOBERON [Concomitant]
     Route: 048
     Dates: start: 20101002, end: 20110501
  11. MUCOSTA [Concomitant]
     Route: 048
     Dates: start: 20101018, end: 20110501
  12. FERROUS CITRATE [Concomitant]
     Route: 048
     Dates: start: 20101104, end: 20110501
  13. HIRUDOID [Concomitant]
     Route: 062
     Dates: start: 20101027, end: 20110501
  14. RINDERON-V [Concomitant]
     Route: 062
     Dates: start: 20101027, end: 20110501
  15. FLUOROURACIL [Suspect]
     Route: 041
     Dates: start: 20101027, end: 20110107

REACTIONS (3)
  - INTERSTITIAL LUNG DISEASE [None]
  - DERMATITIS ACNEIFORM [None]
  - STOMATITIS [None]
